FAERS Safety Report 9567521 (Version 2)
Quarter: 2013Q3

REPORT INFORMATION
  Report Type: Spontaneous
  Country: US (occurrence: US)
  Receive Date: 20130930
  Receipt Date: 20130930
  Transmission Date: 20140515
  Serious: No
  Sender: FDA-Public Use
  Company Number: US-AMGEN-USASP2012066870

PATIENT
  Age: 48 Year
  Sex: Male
  Weight: 77.1 kg

DRUGS (4)
  1. ENBREL [Suspect]
     Indication: RHEUMATOID ARTHRITIS
     Dosage: 50 MG, QWK
     Route: 058
     Dates: start: 201209
  2. METHOTREXATE [Concomitant]
     Dosage: TAKE SIX 2.5MG TABLET
     Route: 048
     Dates: start: 201206
  3. FOLIC ACID [Concomitant]
     Dosage: UNK
     Route: 048
  4. VITAMIN D                          /00107901/ [Concomitant]
     Dosage: 1000 UNIT, UNK
     Route: 048

REACTIONS (1)
  - Migraine [Unknown]
